FAERS Safety Report 6126706-4 (Version None)
Quarter: 2009Q1

REPORT INFORMATION
  Report Type: 
  Country: None (occurrence: None)
  Receive Date: 20090320
  Receipt Date: 20090317
  Transmission Date: 20090719
  Serious: Yes (Death, Hospitalization)
  Sender: FDA-Public Use
  Company Number: PHHY2009DE09911

PATIENT
  Age: 45 Year
  Sex: Male

DRUGS (1)
  1. LEPONEX [Suspect]

REACTIONS (4)
  - ASTHENIA [None]
  - DEATH [None]
  - INFLUENZA LIKE ILLNESS [None]
  - STOMATITIS [None]
